FAERS Safety Report 25671485 (Version 1)
Quarter: 2025Q3

REPORT INFORMATION
  Report Type: Spontaneous
  Country: EU (occurrence: EU)
  Receive Date: 20250812
  Receipt Date: 20250812
  Transmission Date: 20251021
  Serious: Yes (Hospitalization)
  Sender: MYLAN
  Company Number: None

PATIENT
  Age: 69 Year
  Sex: Male
  Weight: 93.5 kg

DRUGS (44)
  1. PREDNISONE [Suspect]
     Active Substance: PREDNISONE
     Indication: Graft versus host disease
     Dosage: 180 MILLIGRAM, QD
     Dates: start: 20210613
  2. PREDNISONE [Suspect]
     Active Substance: PREDNISONE
     Dosage: 180 MILLIGRAM, QD
     Route: 048
     Dates: start: 20210613
  3. PREDNISONE [Suspect]
     Active Substance: PREDNISONE
     Dosage: 180 MILLIGRAM, QD
     Route: 048
     Dates: start: 20210613
  4. PREDNISONE [Suspect]
     Active Substance: PREDNISONE
     Dosage: 180 MILLIGRAM, QD
     Dates: start: 20210613
  5. RITUXIMAB [Concomitant]
     Active Substance: RITUXIMAB
  6. RITUXIMAB [Concomitant]
     Active Substance: RITUXIMAB
     Route: 065
  7. RITUXIMAB [Concomitant]
     Active Substance: RITUXIMAB
     Route: 065
  8. RITUXIMAB [Concomitant]
     Active Substance: RITUXIMAB
  9. BACTRIM [Concomitant]
     Active Substance: SULFAMETHOXAZOLE\TRIMETHOPRIM
  10. BACTRIM [Concomitant]
     Active Substance: SULFAMETHOXAZOLE\TRIMETHOPRIM
     Route: 065
  11. BACTRIM [Concomitant]
     Active Substance: SULFAMETHOXAZOLE\TRIMETHOPRIM
     Route: 065
  12. BACTRIM [Concomitant]
     Active Substance: SULFAMETHOXAZOLE\TRIMETHOPRIM
  13. VALACYCLOVIR HYDROCHLORIDE [Concomitant]
     Active Substance: VALACYCLOVIR HYDROCHLORIDE
  14. VALACYCLOVIR HYDROCHLORIDE [Concomitant]
     Active Substance: VALACYCLOVIR HYDROCHLORIDE
     Route: 065
  15. VALACYCLOVIR HYDROCHLORIDE [Concomitant]
     Active Substance: VALACYCLOVIR HYDROCHLORIDE
     Route: 065
  16. VALACYCLOVIR HYDROCHLORIDE [Concomitant]
     Active Substance: VALACYCLOVIR HYDROCHLORIDE
  17. PENICILLIN V [Concomitant]
     Active Substance: PENICILLIN V
  18. PENICILLIN V [Concomitant]
     Active Substance: PENICILLIN V
     Route: 065
  19. PENICILLIN V [Concomitant]
     Active Substance: PENICILLIN V
     Route: 065
  20. PENICILLIN V [Concomitant]
     Active Substance: PENICILLIN V
  21. LETERMOVIR [Concomitant]
     Active Substance: LETERMOVIR
  22. LETERMOVIR [Concomitant]
     Active Substance: LETERMOVIR
     Route: 065
  23. LETERMOVIR [Concomitant]
     Active Substance: LETERMOVIR
     Route: 065
  24. LETERMOVIR [Concomitant]
     Active Substance: LETERMOVIR
  25. POSACONAZOLE [Concomitant]
     Active Substance: POSACONAZOLE
  26. POSACONAZOLE [Concomitant]
     Active Substance: POSACONAZOLE
     Route: 065
  27. POSACONAZOLE [Concomitant]
     Active Substance: POSACONAZOLE
     Route: 065
  28. POSACONAZOLE [Concomitant]
     Active Substance: POSACONAZOLE
  29. LEUCOVORIN CALCIUM [Concomitant]
     Active Substance: LEUCOVORIN CALCIUM
  30. LEUCOVORIN CALCIUM [Concomitant]
     Active Substance: LEUCOVORIN CALCIUM
     Route: 065
  31. LEUCOVORIN CALCIUM [Concomitant]
     Active Substance: LEUCOVORIN CALCIUM
     Route: 065
  32. LEUCOVORIN CALCIUM [Concomitant]
     Active Substance: LEUCOVORIN CALCIUM
  33. ASPIRIN LYSINE [Concomitant]
     Active Substance: ASPIRIN LYSINE
  34. ASPIRIN LYSINE [Concomitant]
     Active Substance: ASPIRIN LYSINE
     Route: 065
  35. ASPIRIN LYSINE [Concomitant]
     Active Substance: ASPIRIN LYSINE
     Route: 065
  36. ASPIRIN LYSINE [Concomitant]
     Active Substance: ASPIRIN LYSINE
  37. ACEBUTOLOL [Concomitant]
     Active Substance: ACEBUTOLOL
  38. ACEBUTOLOL [Concomitant]
     Active Substance: ACEBUTOLOL
     Route: 065
  39. ACEBUTOLOL [Concomitant]
     Active Substance: ACEBUTOLOL
     Route: 065
  40. ACEBUTOLOL [Concomitant]
     Active Substance: ACEBUTOLOL
  41. LANSOPRAZOLE [Concomitant]
     Active Substance: LANSOPRAZOLE
  42. LANSOPRAZOLE [Concomitant]
     Active Substance: LANSOPRAZOLE
     Route: 065
  43. LANSOPRAZOLE [Concomitant]
     Active Substance: LANSOPRAZOLE
     Route: 065
  44. LANSOPRAZOLE [Concomitant]
     Active Substance: LANSOPRAZOLE

REACTIONS (1)
  - Hypofibrinogenaemia [Not Recovered/Not Resolved]

NARRATIVE: CASE EVENT DATE: 20250617
